FAERS Safety Report 7518337-6 (Version None)
Quarter: 2011Q2

REPORT INFORMATION
  Report Type: 
  Country: None (occurrence: None)
  Receive Date: 20110602
  Receipt Date: 20080722
  Transmission Date: 20111010
  Serious: Yes (Other)
  Sender: FDA-Public Use
  Company Number: US-BAYER-200828594NA

PATIENT
  Age: 3 Year
  Sex: Male
  Weight: 36 kg

DRUGS (17)
  1. TRASYLOL [Suspect]
     Dosage: 24ML LOADING DOSE
     Route: 042
     Dates: start: 19970812, end: 19970812
  2. FENTANYL [Concomitant]
     Dosage: 30MCG, 5ML,20
     Route: 042
     Dates: start: 19970812, end: 19970813
  3. CEFOTAXIME [Concomitant]
     Dosage: 320MILLIGRAMS
     Route: 042
     Dates: start: 19970812, end: 19970812
  4. LASIX [Concomitant]
     Dosage: 5 MG
     Dates: start: 19970812, end: 19970812
  5. DOPAMINE HCL [Concomitant]
     Dosage: UNK
     Route: 042
     Dates: start: 19970812, end: 19970813
  6. RED BLOOD CELLS [Concomitant]
     Dosage: 100
     Route: 042
     Dates: start: 19970812, end: 19970812
  7. PLATELETS [Concomitant]
     Dosage: 140 ML
     Route: 042
     Dates: start: 19970812, end: 19970812
  8. NIMBEX [Concomitant]
     Dosage: 2
     Route: 042
     Dates: start: 19970812, end: 19970812
  9. CRYOPRECIPITATES [Concomitant]
     Dosage: 80 ML
     Route: 042
     Dates: start: 19970812
  10. DILANTIN [Concomitant]
     Dosage: 2 CC TWICE A DAY
     Route: 048
  11. SODIUM BICARBONATE [Concomitant]
     Dosage: 15MEQ
     Dates: start: 19970812, end: 19970812
  12. TRASYLOL [Suspect]
     Indication: DOUBLE OUTLET RIGHT VENTRICLE
     Dosage: 1 ML INITIAL TEST DOSE
     Route: 042
     Dates: start: 19970812, end: 19970812
  13. PLASMA [Concomitant]
     Dosage: 70 CC
     Route: 042
     Dates: start: 19970812, end: 19970812
  14. PLASMA [Concomitant]
     Dosage: 30 CC
     Route: 042
     Dates: start: 19970812, end: 19970812
  15. DIGOXIN [Concomitant]
     Dosage: 60 MICROGRAMS EVERY 12 HOURS PER PEG.
  16. CALCIUM CHLORIDE [Concomitant]
     Dosage: 3 ML
     Route: 016
     Dates: start: 19970812, end: 19970812
  17. HEPARIN [Concomitant]
     Dosage: 5.2 ML
     Route: 013
     Dates: start: 19970812, end: 19970812

REACTIONS (13)
  - BLINDNESS [None]
  - ANHEDONIA [None]
  - PAIN [None]
  - INJURY [None]
  - BRAIN INJURY [None]
  - PHYSICAL DISABILITY [None]
  - ANXIETY [None]
  - MENTAL DISABILITY [None]
  - FEAR [None]
  - MULTI-ORGAN FAILURE [None]
  - RENAL FAILURE [None]
  - UNEVALUABLE EVENT [None]
  - STRESS [None]
